FAERS Safety Report 7812729-3 (Version None)
Quarter: 2011Q4

REPORT INFORMATION
  Report Type: 
  Country: None (occurrence: None)
  Receive Date: 20111013
  Receipt Date: 20111005
  Transmission Date: 20120403
  Serious: Yes (Hospitalization)
  Sender: FDA-Public Use
  Company Number: US-ACTELION-A-US2011-45952

PATIENT

DRUGS (2)
  1. REVATIO [Concomitant]
  2. TRACLEER [Suspect]
     Indication: PULMONARY ARTERIAL HYPERTENSION
     Dosage: UNK
     Route: 048
     Dates: start: 20071221

REACTIONS (6)
  - FLUID RETENTION [None]
  - SWELLING FACE [None]
  - PULMONARY OEDEMA [None]
  - COUGH [None]
  - ELECTROLYTE IMBALANCE [None]
  - OEDEMA [None]
